FAERS Safety Report 11333542 (Version 1)
Quarter: 2015Q3

REPORT INFORMATION
  Report Type: Spontaneous
  Country: US (occurrence: US)
  Receive Date: 20150803
  Receipt Date: 20150803
  Transmission Date: 20151125
  Serious: No
  Sender: FDA-Public Use
  Company Number: US-ELI_LILLY_AND_COMPANY-US200607000865

PATIENT
  Sex: Female

DRUGS (2)
  1. ZYPREXA [Suspect]
     Active Substance: OLANZAPINE
     Indication: BIPOLAR I DISORDER
     Dosage: 3.75 MG, UNK
  2. LITHIUM. [Concomitant]
     Active Substance: LITHIUM

REACTIONS (8)
  - Appetite disorder [Unknown]
  - Nasal dryness [Unknown]
  - Dry mouth [Unknown]
  - Dry eye [Unknown]
  - Somnolence [Unknown]
  - Eye pain [Unknown]
  - Weight increased [Unknown]
  - Sleep disorder [Unknown]
